FAERS Safety Report 5205131-4 (Version None)
Quarter: 2006Q4

REPORT INFORMATION
  Report Type: 
  Country: None (occurrence: None)
  Receive Date: 20061026
  Receipt Date: 20060821
  Transmission Date: 20070319
  Serious: Yes (Death, Other)
  Sender: FDA-Public Use
  Company Number: 2005168227

PATIENT
  Age: 58 Year
  Sex: Male

DRUGS (10)
  1. LYRICA [Suspect]
     Indication: NEURALGIA
     Dosage: 150 MG (75 MG 2 IN 1 D), ORAL
     Route: 048
     Dates: start: 20051208
  2. DIGITALIS CAP [Concomitant]
  3. ALTACE [Concomitant]
  4. ACYCLOVIR [Concomitant]
  5. FLUVOXAMINE MALEATE [Concomitant]
  6. CLONAZEPAM [Concomitant]
  7. AMBIEN [Concomitant]
  8. FLOMAX ^BOEHRINGER INGELHEIM^ (TAMULOSIN HYDROCHLORIDE) [Concomitant]
  9. ALL OTHER THERAPEUTIC PRODUCTS (ALL OTHER THERAPEUTIC PRODUCTS) [Concomitant]
  10. VICODIN [Concomitant]

REACTIONS (7)
  - ABDOMINAL PAIN UPPER [None]
  - BACK PAIN [None]
  - COMPLETED SUICIDE [None]
  - DRUG INEFFECTIVE [None]
  - PAIN [None]
  - UNEVALUABLE EVENT [None]
  - WEIGHT INCREASED [None]
